FAERS Safety Report 6285228-0 (Version None)
Quarter: 2009Q3

REPORT INFORMATION
  Report Type: 
  Country: None (occurrence: None)
  Receive Date: 20090727
  Receipt Date: 20090724
  Transmission Date: 20100115
  Serious: Yes (Other)
  Sender: FDA-Public Use
  Company Number: US-RB-018359-09

PATIENT
  Age: 36 Year
  Sex: Female

DRUGS (2)
  1. SUBOXONE [Suspect]
     Route: 060
     Dates: start: 20070101, end: 20081101
  2. SUBOXONE [Suspect]
     Dosage: CONSUMER BEGAN TO TAPER HER DOSE DOWN AND SHE STOPPED SUBOXONE ON 28-JUN-2009.
     Route: 060
     Dates: start: 20081101, end: 20090628

REACTIONS (2)
  - CERVIX CARCINOMA [None]
  - DRUG WITHDRAWAL SYNDROME [None]
